FAERS Safety Report 26214260 (Version 1)
Quarter: 2025Q4

REPORT INFORMATION
  Report Type: Spontaneous
  Country: KZ (occurrence: KZ)
  Receive Date: 20251230
  Receipt Date: 20251230
  Transmission Date: 20260117
  Serious: Yes (Hospitalization, Other)
  Sender: JOHNSON AND JOHNSON
  Company Number: KZ-JNJFOC-20251231899

PATIENT
  Age: 43 Year
  Sex: Male

DRUGS (3)
  1. SIMPONI [Suspect]
     Active Substance: GOLIMUMAB
     Indication: Product used for unknown indication
     Route: 058
  2. ADALIMUMAB [Suspect]
     Active Substance: ADALIMUMAB
     Indication: Ankylosing spondylitis
  3. ADALIMUMAB [Suspect]
     Active Substance: ADALIMUMAB
     Indication: Ankylosing spondylitis

REACTIONS (11)
  - Iridocyclitis [Unknown]
  - Skin ulcer [Unknown]
  - Hallucination [Unknown]
  - Pyrexia [Unknown]
  - Osteomyelitis [Unknown]
  - Sepsis [Unknown]
  - Joint ankylosis [Unknown]
  - Joint ankylosis [Unknown]
  - Panic attack [Unknown]
  - Lymphopenia [Unknown]
  - Hypoalbuminaemia [Unknown]
